FAERS Safety Report 8318542-5 (Version None)
Quarter: 2012Q2

REPORT INFORMATION
  Report Type: 
  Country: None (occurrence: None)
  Receive Date: 20120427
  Receipt Date: 20120426
  Transmission Date: 20120825
  Serious: Yes (Other)
  Sender: FDA-Public Use
  Company Number: US-GLAXOSMITHKLINE-A0975288A

PATIENT
  Age: 54 Year
  Sex: Female

DRUGS (3)
  1. CLONAZEPAM [Suspect]
     Indication: ANXIETY DISORDER
     Dosage: .5MG PER DAY
  2. NICODERM CQ [Suspect]
     Indication: SMOKING CESSATION THERAPY
     Route: 062
     Dates: start: 20120303
  3. PROZAC [Suspect]
     Indication: ANXIETY DISORDER
     Dosage: 20MG TWICE PER DAY

REACTIONS (7)
  - CONDITION AGGRAVATED [None]
  - HYPERSOMNIA [None]
  - ANXIETY [None]
  - ABNORMAL DREAMS [None]
  - SUICIDAL IDEATION [None]
  - LETHARGY [None]
  - DRUG INTERACTION [None]
